FAERS Safety Report 4695764-6 (Version None)
Quarter: 2005Q2

REPORT INFORMATION
  Report Type: 
  Country: None (occurrence: None)
  Receive Date: 20050621
  Receipt Date: 20050425
  Transmission Date: 20051028
  Serious: Yes (Hospitalization)
  Sender: FDA-Public Use
  Company Number: FR-BRISTOL-MYERS SQUIBB COMPANY-12945333

PATIENT
  Age: 63 Year
  Sex: Male

DRUGS (7)
  1. PARAPLATIN [Suspect]
     Indication: NON-SMALL CELL LUNG CANCER
     Route: 042
     Dates: end: 20050127
  2. TAXOTERE [Suspect]
     Indication: NON-SMALL CELL LUNG CANCER
     Dates: end: 20050127
  3. SOPROL [Concomitant]
  4. LISINOPRIL [Concomitant]
  5. KARDEGIC [Concomitant]
  6. PRAVACHOL [Concomitant]
  7. IKOREL [Concomitant]

REACTIONS (1)
  - RENAL FAILURE ACUTE [None]
